FAERS Safety Report 6580012-2 (Version None)
Quarter: 2010Q1

REPORT INFORMATION
  Report Type: 
  Country: None (occurrence: None)
  Receive Date: 20100212
  Receipt Date: 20100127
  Transmission Date: 20100710
  Serious: Yes (Other)
  Sender: FDA-Public Use
  Company Number: US-BAYER-201014073GPV

PATIENT

DRUGS (11)
  1. DACARBAZINE [Suspect]
     Indication: METASTATIC MALIGNANT MELANOMA
     Route: 042
  2. TAXOL [Suspect]
     Indication: METASTATIC MALIGNANT MELANOMA
     Route: 042
  3. CISPLATIN [Suspect]
     Indication: METASTATIC MALIGNANT MELANOMA
  4. ZOFRAN [Concomitant]
     Dosage: 16-32 MG
     Route: 042
  5. LORAZEPAM [Concomitant]
     Dosage: 0.5-1 MG
     Route: 042
  6. DEXAMETHASONE [Concomitant]
     Route: 042
  7. BENADRYL [Concomitant]
     Route: 042
  8. CIMETIDINE [Concomitant]
     Route: 042
  9. NORMAL SALINE [Concomitant]
  10. POTASSIUM CHLORIDE [Concomitant]
     Route: 042
  11. MAGNESIUM SULFATE [Concomitant]

REACTIONS (1)
  - NEUROPATHY PERIPHERAL [None]
